FAERS Safety Report 9387648 (Version 1)
Quarter: 2013Q3

REPORT INFORMATION
  Report Type: Spontaneous
  Country: CH (occurrence: CH)
  Receive Date: 20130708
  Receipt Date: 20130708
  Transmission Date: 20140515
  Serious: Yes (Other)
  Sender: FDA-Public Use
  Company Number: CH-PFIZER INC-2013196596

PATIENT
  Age: 46 Year
  Sex: Male

DRUGS (2)
  1. EFEXOR ER [Suspect]
     Indication: DEPRESSION
     Dosage: 37.5 MG, 1X/DAY
     Route: 048
     Dates: start: 20130616, end: 20130618
  2. FLUCTINE [Interacting]
     Indication: DEPRESSION
     Dosage: 10 MG, 1X/DAY
     Route: 048
     Dates: start: 20130601, end: 20130614

REACTIONS (4)
  - Drug interaction [Recovering/Resolving]
  - Serotonin syndrome [Recovering/Resolving]
  - Headache [Recovered/Resolved]
  - Agitation [Recovered/Resolved]
